FAERS Safety Report 9145850 (Version 1)
Quarter: 2013Q1

REPORT INFORMATION
  Report Type: Spontaneous
  Country: US (occurrence: None)
  Receive Date: 20130205
  Receipt Date: 20130205
  Transmission Date: 20140127
  Serious: Yes (Death)
  Sender: FDA-Public Use
  Company Number: 1583430

PATIENT
  Age: 57 Year
  Sex: Female

DRUGS (7)
  1. MEROPENEM [Suspect]
     Indication: PRODUCT USED FOR UNKNOWN INDICATION
  2. VANCOMYCIN HYDROCHLORIDE [Suspect]
     Indication: PRODUCT USED FOR UNKNOWN INDICATION
  3. ENZYME AP [Suspect]
     Indication: POLYCYTHAEMIA VERA
     Route: 048
  4. ENZYME AP [Suspect]
     Indication: MYELOFIBROSIS
     Route: 048
  5. BACTRIM [Suspect]
     Indication: PRODUCT USED FOR UNKNOWN INDICATION
  6. VORICONAZOLE [Concomitant]
  7. VALTREX [Concomitant]

REACTIONS (5)
  - Bone marrow failure [None]
  - Device related sepsis [None]
  - Febrile neutropenia [None]
  - Thrombocytopenia [None]
  - Myelodysplastic syndrome transformation [None]
